FAERS Safety Report 10297460 (Version 1)
Quarter: 2014Q3

REPORT INFORMATION
  Report Type: Spontaneous
  Country: US (occurrence: US)
  Receive Date: 20140711
  Receipt Date: 20140711
  Transmission Date: 20150326
  Serious: Yes (Other)
  Sender: FDA-Public Use
  Company Number: US-JNJFOC-20140620856

PATIENT
  Age: 59 Year
  Sex: Female

DRUGS (1)
  1. LEVOFLOXACIN [Suspect]
     Active Substance: LEVOFLOXACIN
     Indication: INFECTION
     Route: 065
     Dates: start: 200912

REACTIONS (7)
  - Major depression [Unknown]
  - Attention deficit/hyperactivity disorder [Unknown]
  - Amnesia [Unknown]
  - Dementia [Unknown]
  - Paraesthesia [Unknown]
  - Flushing [Unknown]
  - Asthenia [Unknown]
